FAERS Safety Report 6451449-7 (Version None)
Quarter: 2009Q4

REPORT INFORMATION
  Report Type: 
  Country: None (occurrence: None)
  Receive Date: 20091123
  Receipt Date: 20081212
  Transmission Date: 20100525
  Serious: No
  Sender: FDA-Public Use
  Company Number: US-BRISTOL-MYERS SQUIBB COMPANY-14449086

PATIENT
  Age: 71 Year
  Sex: Male

DRUGS (11)
  1. AVALIDE [Suspect]
     Indication: BLOOD PRESSURE
     Dosage: 1 DF=300/25 MG EVERY MORNING THERAPY DATES =1 YEAR
  2. AVALIDE [Suspect]
     Indication: OEDEMA PERIPHERAL
     Dosage: 1 DF=300/25 MG EVERY MORNING THERAPY DATES =1 YEAR
  3. HYDRALAZINE HCL [Concomitant]
  4. LISINOPRIL [Concomitant]
  5. HYTRIN [Concomitant]
  6. POTASSIUM CHLORIDE [Concomitant]
  7. AMLODIPINE [Concomitant]
  8. NEXIUM [Concomitant]
  9. ASPIRIN [Concomitant]
  10. VITAMIN [Concomitant]
  11. ATENOLOL [Concomitant]

REACTIONS (1)
  - OEDEMA PERIPHERAL [None]
